FAERS Safety Report 5625665-8 (Version None)
Quarter: 2008Q1

REPORT INFORMATION
  Report Type: 
  Country: None (occurrence: None)
  Receive Date: 20080214
  Receipt Date: 20080206
  Transmission Date: 20080703
  Serious: Yes (Other)
  Sender: FDA-Public Use
  Company Number: DE-JNJFOC-20080201909

PATIENT
  Age: 59 Year
  Sex: Male
  Weight: 125 kg

DRUGS (10)
  1. REMICADE [Suspect]
  2. REMICADE [Suspect]
     Indication: PSORIATIC ARTHROPATHY
  3. METHOTREXATE [Concomitant]
     Route: 042
  4. METHOTREXATE [Concomitant]
     Route: 042
  5. DECORTIN [Concomitant]
  6. CALCIUM GLUCONATE [Concomitant]
  7. VITAMIN D [Concomitant]
  8. NEXIUM [Concomitant]
  9. ALLOPURINOL [Concomitant]
  10. DAIVONEX [Concomitant]

REACTIONS (1)
  - PROSTATE CANCER [None]
